FAERS Safety Report 21683552 (Version 1)
Quarter: 2022Q4

REPORT INFORMATION
  Report Type: Spontaneous
  Country: IL (occurrence: IL)
  Receive Date: 20221205
  Receipt Date: 20221205
  Transmission Date: 20230113
  Serious: Yes (Other)
  Sender: FDA-Public Use
  Company Number: IL-TEVA-2022-IL-2832976

PATIENT
  Age: 7 Year
  Sex: Male

DRUGS (1)
  1. AMOXICILLIN [Suspect]
     Active Substance: AMOXICILLIN
     Indication: Product used for unknown indication
     Dosage: FORM STRENGTH: 250MILLIGRAM
     Route: 065

REACTIONS (2)
  - Rash [Unknown]
  - Dyspnoea [Unknown]
